FAERS Safety Report 5028386-8 (Version None)
Quarter: 2006Q2

REPORT INFORMATION
  Report Type: 
  Country: None (occurrence: None)
  Receive Date: 20060503
  Receipt Date: 20060224
  Transmission Date: 20061013
  Serious: No
  Sender: FDA-Public Use
  Company Number: FACT0600133

PATIENT
  Age: 21 Year
  Sex: Female
  Weight: 65.8 kg

DRUGS (2)
  1. FACTIVE [Suspect]
     Indication: RESPIRATORY TRACT INFECTION BACTERIAL
     Dosage: 320 MG, QD, ORAL
     Route: 048
     Dates: start: 20060217, end: 20060220
  2. GUAIFENESIN W/HYDROCODONE BITARTRATE(GUAIFENESIN, HYDROCODONE BITARTRA [Suspect]
     Dosage: 1 TSP, ORAL
     Route: 048
     Dates: start: 20060219, end: 20060101

REACTIONS (6)
  - ABDOMINAL PAIN [None]
  - DECREASED APPETITE [None]
  - DIARRHOEA [None]
  - NAUSEA [None]
  - RASH PRURITIC [None]
  - VOMITING [None]
